FAERS Safety Report 5881842-2 (Version None)
Quarter: 2008Q3

REPORT INFORMATION
  Report Type: 
  Country: None (occurrence: None)
  Receive Date: 20080912
  Receipt Date: 20080814
  Transmission Date: 20090109
  Serious: No
  Sender: FDA-Public Use
  Company Number: US-ABBOTT-08P-163-0463011-00

PATIENT
  Sex: Female
  Weight: 83.082 kg

DRUGS (15)
  1. HUMIRA [Suspect]
     Indication: CROHN'S DISEASE
     Route: 058
     Dates: start: 20080714, end: 20080714
  2. HUMIRA [Suspect]
     Route: 058
     Dates: start: 20080728, end: 20080728
  3. HUMIRA [Suspect]
     Route: 058
     Dates: start: 20080812
  4. MESALAMINE [Concomitant]
     Indication: CROHN'S DISEASE
     Dosage: 400 MG X 3 TAB BID
     Route: 048
     Dates: start: 20050101
  5. ANOVLAR [Concomitant]
     Indication: CONTRACEPTION
     Route: 048
     Dates: start: 19880101
  6. SPIRONOLACTONE [Concomitant]
     Indication: DRUG USE FOR UNKNOWN INDICATION
     Route: 048
     Dates: start: 19880101
  7. ZONISAMIDE [Concomitant]
     Indication: HEADACHE
     Route: 048
     Dates: start: 20050101
  8. PREDNISONE TAB [Concomitant]
     Indication: CROHN'S DISEASE
     Route: 048
     Dates: start: 20070101
  9. ZOLPIDEM TARTRATE [Concomitant]
     Indication: SLEEP DISORDER THERAPY
     Route: 048
     Dates: start: 20030101
  10. LANSOPRAZOLE [Concomitant]
     Indication: GASTROOESOPHAGEAL REFLUX DISEASE
     Route: 048
     Dates: start: 20050101
  11. PROMETHAZINE [Concomitant]
     Indication: CROHN'S DISEASE
     Route: 048
     Dates: start: 20050101
  12. DICYCLOVERINE [Concomitant]
     Indication: CROHN'S DISEASE
     Route: 048
     Dates: start: 20030101
  13. FENTANYL [Concomitant]
     Indication: CROHN'S DISEASE
     Dosage: PATCH
     Route: 061
     Dates: start: 20080101
  14. POTASSIUM CHLORIDE [Concomitant]
     Indication: BLOOD POTASSIUM DECREASED
     Route: 048
     Dates: start: 20080601
  15. PROPRANOLOL [Concomitant]
     Indication: HEADACHE
     Route: 048
     Dates: start: 20030101

REACTIONS (2)
  - ACCIDENTAL EXPOSURE [None]
  - CROHN'S DISEASE [None]
